FAERS Safety Report 6711413-7 (Version None)
Quarter: 2010Q2

REPORT INFORMATION
  Report Type: 
  Country: None (occurrence: None)
  Receive Date: 20100505
  Receipt Date: 20100429
  Transmission Date: 20101027
  Serious: Yes (Hospitalization)
  Sender: FDA-Public Use
  Company Number: IT-PFIZER INC-2010026598

PATIENT
  Age: 74 Year
  Sex: Female

DRUGS (2)
  1. ZITHROMAX [Suspect]
     Indication: INFLUENZA
     Dosage: 250 MG, 1X/DAY
     Route: 048
     Dates: start: 20080401, end: 20080404
  2. IGROSELES [Concomitant]

REACTIONS (2)
  - DYSPNOEA [None]
  - GENERALISED ERYTHEMA [None]
